FAERS Safety Report 10424140 (Version 3)
Quarter: 2014Q4

REPORT INFORMATION
  Report Type: Report from Study
  Country: US (occurrence: US)
  Receive Date: 20140902
  Receipt Date: 20141013
  Transmission Date: 20150528
  Serious: Yes (Other)
  Sender: FDA-Public Use
  Company Number: US-ONYX-2014-1623

PATIENT
  Age: 75 Year
  Sex: Male
  Weight: 84.9 kg

DRUGS (3)
  1. DEXAMETHASONE. [Concomitant]
     Active Substance: DEXAMETHASONE
     Indication: PLASMA CELL MYELOMA
     Route: 042
     Dates: start: 20140409, end: 20140619
  2. CARFILZOMIB [Suspect]
     Active Substance: CARFILZOMIB
     Indication: PLASMA CELL MYELOMA
     Route: 042
     Dates: start: 20140409
  3. CARFILZOMIB [Suspect]
     Active Substance: CARFILZOMIB
     Route: 042
     Dates: end: 20140619

REACTIONS (2)
  - Ejection fraction decreased [Unknown]
  - Restrictive cardiomyopathy [Unknown]

NARRATIVE: CASE EVENT DATE: 20140620
